FAERS Safety Report 5455892-4 (Version None)
Quarter: 2007Q3

REPORT INFORMATION
  Report Type: 
  Country: None (occurrence: None)
  Receive Date: 20070918
  Receipt Date: 20070330
  Transmission Date: 20080115
  Serious: Yes (Other)
  Sender: FDA-Public Use
  Company Number: US-ASTRAZENECA-2006UW24155

PATIENT
  Sex: Male
  Weight: 90.9 kg

DRUGS (6)
  1. SEROQUEL [Suspect]
     Indication: DEPRESSION
     Route: 048
     Dates: end: 20030101
  2. SEROQUEL [Suspect]
     Indication: ANXIETY
     Route: 048
     Dates: end: 20030101
  3. SEROQUEL [Suspect]
     Indication: NERVOUSNESS
     Route: 048
     Dates: end: 20030101
  4. STELAZINE [Concomitant]
     Dates: start: 19700101
  5. THORAZINE [Concomitant]
     Dates: start: 19700101
  6. ZYPREXA [Concomitant]
     Dates: start: 19900101

REACTIONS (2)
  - DIABETES MELLITUS [None]
  - PANCREATITIS [None]
